FAERS Safety Report 4855857-7 (Version None)
Quarter: 2005Q4

REPORT INFORMATION
  Report Type: 
  Country: None (occurrence: None)
  Receive Date: 20051215
  Receipt Date: 20051215
  Transmission Date: 20060501
  Serious: No
  Sender: FDA-Public Use
  Company Number: None

PATIENT
  Age: 77 Year
  Sex: Male
  Weight: 62.5964 kg

DRUGS (10)
  1. EZETIMIBE 10 MG [Suspect]
     Indication: HYPERLIPIDAEMIA
     Dosage: 10 MG DAILY PO
     Route: 048
  2. CLOPIDOGREL BISULFATE [Concomitant]
  3. LANOXIN [Concomitant]
  4. FOLIC ACID [Concomitant]
  5. HYDROCHLOROTHIAZIDE [Concomitant]
  6. LISINOPRIL [Concomitant]
  7. METFORMIN HCL [Concomitant]
  8. METOPROLOL [Concomitant]
  9. NIFEDIPINE [Concomitant]
  10. COUMADIN [Concomitant]

REACTIONS (1)
  - ASTHENIA [None]
